FAERS Safety Report 10166813 (Version 1)
Quarter: 2014Q2

REPORT INFORMATION
  Report Type: Spontaneous
  Country: KP (occurrence: KP)
  Receive Date: 20140512
  Receipt Date: 20140512
  Transmission Date: 20141212
  Serious: Yes (Death, Hospitalization)
  Sender: FDA-Public Use
  Company Number: KP-PAR PHARMACEUTICAL, INC-2014SCPR009045

PATIENT
  Sex: 0

DRUGS (11)
  1. COLY-MYCIN M PARENTERAL [Suspect]
     Indication: ACINETOBACTER INFECTION
     Dosage: 75-300 MG, / DAY
     Route: 042
  2. COLY-MYCIN M PARENTERAL [Suspect]
     Dosage: 300 MG, / DAY
  3. CEPHALOSPORIN C [Suspect]
     Indication: ACINETOBACTER INFECTION
     Dosage: UNK, UNKNOWN
     Route: 065
  4. AMPHOTERICIN B [Suspect]
     Indication: ACINETOBACTER INFECTION
     Dosage: UNK, UNKNOWN
     Route: 065
  5. CARBAPENEMS [Suspect]
     Indication: ACINETOBACTER INFECTION
     Dosage: UNK, UNKNOWN
     Route: 065
  6. SULFA DRUGS [Suspect]
     Indication: ACINETOBACTER INFECTION
     Dosage: UNK, UNKNOWN
     Route: 065
  7. TEICOPLANIN [Suspect]
     Indication: ACINETOBACTER INFECTION
     Dosage: UNK, UNKNOWN
     Route: 065
  8. VANCOMYCIN [Suspect]
     Indication: ACINETOBACTER INFECTION
     Dosage: UNK, UNKNOWN
     Route: 065
  9. AMINOGLYCOSIDE ANTIBACTERIALS [Suspect]
     Indication: ACINETOBACTER INFECTION
     Dosage: UNK, UNKNOWN
     Route: 065
  10. CASPOFUNGIN [Suspect]
     Indication: ACINETOBACTER INFECTION
     Dosage: UNK, UNKNOWN
     Route: 065
  11. LINEZOLID [Suspect]
     Indication: ACINETOBACTER INFECTION
     Dosage: UNK, UNKNOWN
     Route: 065

REACTIONS (15)
  - Sepsis [Fatal]
  - Pneumonia [Fatal]
  - Death [Fatal]
  - Neurotoxicity [Unknown]
  - Haematotoxicity [Unknown]
  - Hepatotoxicity [Unknown]
  - Electrolyte imbalance [Unknown]
  - Vomiting [Unknown]
  - Nephropathy toxic [Unknown]
  - Rash [Unknown]
  - Urticaria [Unknown]
  - Diarrhoea [Unknown]
  - Abdominal pain [Unknown]
  - Nausea [Unknown]
  - Pyrexia [Unknown]
